FAERS Safety Report 10964710 (Version 4)
Quarter: 2015Q2

REPORT INFORMATION
  Report Type: Report from Study
  Country: AU (occurrence: AU)
  Receive Date: 20150330
  Receipt Date: 20150413
  Transmission Date: 20150821
  Serious: Yes (Death, Hospitalization, Other)
  Sender: FDA-Public Use
  Company Number: AU-GILEAD-2015-0141053

PATIENT
  Age: 54 Year
  Sex: Male

DRUGS (3)
  1. SOFOSBUVIR [Suspect]
     Active Substance: SOFOSBUVIR
     Indication: HEPATITIS C
     Dosage: 400 MG, UNK
     Route: 048
     Dates: start: 20150218, end: 20150223
  2. CELLCEPT [Concomitant]
     Active Substance: MYCOPHENOLATE MOFETIL\MYCOPHENOLATE MOFETIL HYDROCHLORIDE
     Indication: LIVER DISORDER
     Dosage: 1 G, UNK
     Route: 048
  3. DACLATASVIR [Concomitant]
     Active Substance: DACLATASVIR
     Indication: HEPATITIS C
     Dosage: 60 MG, UNK
     Route: 048
     Dates: start: 20150218, end: 20150303

REACTIONS (6)
  - Condition aggravated [Fatal]
  - Lower respiratory tract infection [Fatal]
  - Death [Fatal]
  - Sepsis [Fatal]
  - Hepatic cirrhosis [Fatal]
  - Atrial fibrillation [Fatal]
